FAERS Safety Report 16824849 (Version 1)
Quarter: 2019Q3

REPORT INFORMATION
  Report Type: Other
  Country: CN (occurrence: CN)
  Receive Date: 20190918
  Receipt Date: 20190918
  Transmission Date: 20191005
  Serious: Yes (Other)
  Sender: FDA-Public Use
  Company Number: CN-JIANGSU HENGRUI MEDICINE CO., LTD.-2074635

PATIENT
  Age: 84 Year
  Sex: Male
  Weight: 70 kg

DRUGS (3)
  1. ASPIRIN ENTERIC-COATED TABLETS [Suspect]
     Active Substance: ASPIRIN
     Route: 048
     Dates: start: 20190804, end: 20190809
  2. TICAGRELOR TABLETS [Suspect]
     Active Substance: TICAGRELOR
     Route: 048
     Dates: start: 20190804, end: 20190809
  3. DEXMEDETOMIDINE HYDROCHLORIDE INJECTION, 200 MCG/2 ML (100 MCG/ML) SIN [Suspect]
     Active Substance: DEXMEDETOMIDINE HYDROCHLORIDE
     Indication: PRODUCT USED FOR UNKNOWN INDICATION
     Route: 048
     Dates: start: 20190805, end: 20190808

REACTIONS (1)
  - Blood uric acid increased [Recovering/Resolving]

NARRATIVE: CASE EVENT DATE: 20190806
